FAERS Safety Report 5370409-0 (Version None)
Quarter: 2007Q2

REPORT INFORMATION
  Report Type: 
  Country: None (occurrence: None)
  Receive Date: 20070626
  Receipt Date: 20070129
  Transmission Date: 20071010
  Serious: No
  Sender: FDA-Public Use
  Company Number: US-AMGEN-US208792

PATIENT
  Sex: Male

DRUGS (3)
  1. ARANESP [Suspect]
     Indication: RENAL FAILURE CHRONIC
     Route: 058
     Dates: start: 20060912
  2. UNSPECIFIED ANTIHYPERTENSIVE AGENT [Concomitant]
     Route: 065
  3. PHOSLO [Concomitant]
     Route: 065
     Dates: start: 20070101

REACTIONS (2)
  - BLOOD CREATININE INCREASED [None]
  - OEDEMA PERIPHERAL [None]
